FAERS Safety Report 9201034 (Version 3)
Quarter: 2013Q3

REPORT INFORMATION
  Report Type: Spontaneous
  Country: US (occurrence: None)
  Receive Date: 20130327
  Receipt Date: 20130815
  Transmission Date: 20140515
  Serious: Yes (Other)
  Sender: FDA-Public Use
  Company Number: ADR-2012-01122

PATIENT
  Sex: Male

DRUGS (1)
  1. BACLOFEN [Suspect]
     Indication: SPINAL CORD INJURY

REACTIONS (10)
  - Abasia [None]
  - Tinnitus [None]
  - Back disorder [None]
  - Wheelchair user [None]
  - Drug ineffective [None]
  - Overdose [None]
  - Mobility decreased [None]
  - Device difficult to use [None]
  - Device ineffective [None]
  - Abasia [None]
